FAERS Safety Report 20372362 (Version 1)
Quarter: 2022Q1

REPORT INFORMATION
  Report Type: Spontaneous
  Country: US (occurrence: US)
  Receive Date: 20220124
  Receipt Date: 20220124
  Transmission Date: 20220423
  Serious: Yes (Other)
  Sender: FDA-Public Use
  Company Number: US-SUN PHARMACEUTICAL INDUSTRIES LTD-2022R1-324068

PATIENT
  Age: 32 Year
  Sex: Male

DRUGS (17)
  1. DICYCLOMINE [Suspect]
     Active Substance: DICYCLOMINE HYDROCHLORIDE
     Indication: Cannabinoid hyperemesis syndrome
     Dosage: 2 MILLIGRAM
     Route: 048
  2. KETOROLAC [Suspect]
     Active Substance: KETOROLAC TROMETHAMINE
     Indication: Cannabinoid hyperemesis syndrome
     Dosage: 30 MILLIGRAM
     Route: 042
  3. OMEPRAZOLE [Suspect]
     Active Substance: OMEPRAZOLE
     Indication: Cannabinoid hyperemesis syndrome
     Dosage: 40 MILLIGRAM
     Route: 065
  4. ONDANSETRON [Suspect]
     Active Substance: ONDANSETRON
     Indication: Cannabinoid hyperemesis syndrome
     Dosage: 4 MILLIGRAM
     Route: 048
  5. PANTOPRAZOLE [Suspect]
     Active Substance: PANTOPRAZOLE
     Indication: Cannabinoid hyperemesis syndrome
     Dosage: 40 MILLIGRAM
     Route: 048
  6. PROMETHAZINE [Suspect]
     Active Substance: PROMETHAZINE HYDROCHLORIDE
     Indication: Cannabinoid hyperemesis syndrome
     Dosage: 25 MILLIGRAM
     Route: 048
  7. OLANZAPINE [Suspect]
     Active Substance: OLANZAPINE
     Indication: Cannabinoid hyperemesis syndrome
     Dosage: 20 MILLIGRAM
     Route: 048
  8. ONDANSETRON [Suspect]
     Active Substance: ONDANSETRON
     Indication: Cannabinoid hyperemesis syndrome
     Dosage: 4 MILLIGRAM
     Route: 042
  9. METOCLOPRAMIDE [Suspect]
     Active Substance: METOCLOPRAMIDE
     Indication: Cannabinoid hyperemesis syndrome
     Dosage: 10 MILLIGRAM
     Route: 048
  10. MORPHINE [Suspect]
     Active Substance: MORPHINE
     Indication: Cannabinoid hyperemesis syndrome
     Dosage: 4-8 MG
     Route: 042
  11. HALOPERIDOL [Suspect]
     Active Substance: HALOPERIDOL
     Indication: Cannabinoid hyperemesis syndrome
     Dosage: 5 MILLIGRAM
     Route: 042
  12. DIPHENHYDRAMINE [Suspect]
     Active Substance: DIPHENHYDRAMINE
     Indication: Cannabinoid hyperemesis syndrome
     Dosage: 50 MILLIGRAM
     Route: 042
  13. FAMOTIDINE [Suspect]
     Active Substance: FAMOTIDINE
     Indication: Cannabinoid hyperemesis syndrome
     Dosage: 40 MILLIGRAM
     Route: 065
  14. HYOSCYAMINE [Suspect]
     Active Substance: HYOSCYAMINE
     Indication: Cannabinoid hyperemesis syndrome
     Dosage: 0.125 MILLIGRAM
     Route: 048
  15. MAALOX ANTACID [Suspect]
     Active Substance: ALUMINUM HYDROXIDE\DIMETHICONE\MAGNESIUM HYDROXIDE
     Indication: Cannabinoid hyperemesis syndrome
     Dosage: 200-200-20 MG/5 ML 30 ML +15 ML+ 10 ML
     Route: 065
  16. PROMETHAZINE [Suspect]
     Active Substance: PROMETHAZINE HYDROCHLORIDE
     Indication: Cannabinoid hyperemesis syndrome
     Dosage: 25 MILLIGRAM
     Route: 054
  17. SUCRALFATE [Suspect]
     Active Substance: SUCRALFATE
     Indication: Cannabinoid hyperemesis syndrome
     Dosage: 1 GRAM
     Route: 048

REACTIONS (2)
  - Drug ineffective [Unknown]
  - Off label use [Not Recovered/Not Resolved]
